FAERS Safety Report 6892758-7 (Version None)
Quarter: 2010Q3

REPORT INFORMATION
  Report Type: 
  Country: None (occurrence: None)
  Receive Date: 20100731
  Receipt Date: 20080907
  Transmission Date: 20110219
  Serious: No
  Sender: FDA-Public Use
  Company Number: US-PFIZER INC-2008075537

PATIENT
  Sex: Female
  Weight: 61.363 kg

DRUGS (12)
  1. GABAPENTIN [Suspect]
     Indication: NERVE INJURY
     Dates: start: 20080101
  2. ALL OTHER THERAPEUTIC PRODUCTS [Suspect]
  3. BUPROPION [Concomitant]
  4. ALPRAZOLAM [Concomitant]
  5. FUROSEMIDE [Concomitant]
  6. LORATADINE [Concomitant]
  7. ASPIRIN [Concomitant]
  8. CARVEDILOL [Concomitant]
  9. KLOR-CON [Concomitant]
  10. MULTI-VITAMINS [Concomitant]
  11. ANXIOLYTICS [Concomitant]
     Indication: ANXIETY
  12. ANTIDEPRESSANTS [Concomitant]
     Indication: DEPRESSION

REACTIONS (6)
  - DRUG INEFFECTIVE [None]
  - EMOTIONAL DISORDER [None]
  - GENERAL PHYSICAL HEALTH DETERIORATION [None]
  - HYPERTENSION [None]
  - MEDICATION ERROR [None]
  - OEDEMA PERIPHERAL [None]
